FAERS Safety Report 9553787 (Version 3)
Quarter: 2013Q4

REPORT INFORMATION
  Report Type: Spontaneous
  Country: DE (occurrence: DE)
  Receive Date: 20130925
  Receipt Date: 20131110
  Transmission Date: 20140711
  Serious: Yes (Hospitalization)
  Sender: FDA-Public Use
  Company Number: DE-ROCHE-1279575

PATIENT
  Age: 14 Year
  Sex: Female
  Weight: 60 kg

DRUGS (10)
  1. ACTEMRA [Suspect]
     Indication: JUVENILE IDIOPATHIC ARTHRITIS
     Route: 042
     Dates: start: 20130716
  2. ACTEMRA [Suspect]
     Route: 042
     Dates: start: 20130802
  3. OMEPRAZOL [Concomitant]
     Route: 048
     Dates: start: 20130802
  4. IBUPROFEN [Concomitant]
     Indication: ARTHRALGIA
     Dosage: MAXIMUM OF 1200MG PER DAY
     Route: 065
  5. IBUPROFEN [Concomitant]
     Route: 048
  6. METHYLPREDNISOLON [Concomitant]
     Dosage: FOR 3 DAYS
     Route: 042
  7. METHYLPREDNISOLON [Concomitant]
     Dosage: FOR 3 DAYS
     Route: 042
  8. FOLIC ACID [Concomitant]
     Route: 048
  9. METHOTREXATE [Concomitant]
     Route: 058
  10. PREDNISONE [Concomitant]
     Route: 048

REACTIONS (1)
  - Hypersensitivity [Recovered/Resolved]
